FAERS Safety Report 4348849-8 (Version None)
Quarter: 2004Q2

REPORT INFORMATION
  Report Type: 
  Country: None (occurrence: None)
  Receive Date: 20040423
  Receipt Date: 20040415
  Transmission Date: 20050107
  Serious: Yes (Life-Threatening, Other)
  Sender: FDA-Public Use
  Company Number: 2004JP000422

PATIENT
  Age: 43 Year
  Sex: Male

DRUGS (3)
  1. PROTOPIC [Suspect]
     Indication: DERMATITIS ATOPIC
     Dosage: 0.10%,TOPICAL
     Route: 061
  2. LIDOMEX (PREDNISOLONE VALEROACETATE) OINTMENT [Concomitant]
  3. ANTEBATE (BETAMETHASONE BUTYRATE PROPIONATE) OINTMENT [Concomitant]

REACTIONS (7)
  - CARCINOMA [None]
  - DERMATITIS ATOPIC [None]
  - ERYTHEMA [None]
  - METASTASES TO LYMPH NODES [None]
  - PRURITUS [None]
  - SWEAT GLAND TUMOUR [None]
  - TENDERNESS [None]
